FAERS Safety Report 9529686 (Version 2)
Quarter: 2013Q4

REPORT INFORMATION
  Report Type: Spontaneous
  Country: US (occurrence: US)
  Receive Date: 20130917
  Receipt Date: 20131114
  Transmission Date: 20140711
  Serious: Yes (Death, Hospitalization)
  Sender: FDA-Public Use
  Company Number: US-GLAXOSMITHKLINE-A1041538A

PATIENT
  Age: 87 Year
  Sex: Male

DRUGS (2)
  1. SORIATANE [Suspect]
     Indication: DERMATITIS ALLERGIC
     Dates: end: 201212
  2. MULTIPLE MEDICATIONS [Concomitant]

REACTIONS (4)
  - Death [Fatal]
  - Cardiac failure congestive [Unknown]
  - Oesophageal carcinoma [Unknown]
  - Metastases to lymph nodes [Unknown]
